FAERS Safety Report 22271458 (Version 3)
Quarter: 2023Q2

REPORT INFORMATION
  Report Type: Spontaneous
  Country: US (occurrence: US)
  Receive Date: 20230501
  Receipt Date: 20230602
  Transmission Date: 20230721
  Serious: No
  Sender: FDA-Public Use
  Company Number: US-Ipsen Biopharmaceuticals, Inc.-2023-09406

PATIENT
  Sex: Female

DRUGS (1)
  1. DYSPORT [Suspect]
     Active Substance: ABOBOTULINUMTOXINA
     Indication: Skin cosmetic procedure
     Route: 065
     Dates: start: 20230404

REACTIONS (8)
  - Hyperhidrosis [Unknown]
  - Dry mouth [Unknown]
  - Gastrointestinal disorder [Unknown]
  - Palpitations [Unknown]
  - Chills [Unknown]
  - Myalgia [Unknown]
  - Cold sweat [Unknown]
  - Influenza like illness [Unknown]

NARRATIVE: CASE EVENT DATE: 20230405
